FAERS Safety Report 13802068 (Version 2)
Quarter: 2017Q3

REPORT INFORMATION
  Report Type: Spontaneous
  Country: IT (occurrence: IT)
  Receive Date: 20170727
  Receipt Date: 20170801
  Transmission Date: 20171127
  Serious: Yes (Other)
  Sender: FDA-Public Use
  Company Number: IT-MYLANLABS-2017M1044716

PATIENT

DRUGS (1)
  1. PACLITAXEL. [Suspect]
     Active Substance: PACLITAXEL
     Indication: BREAST CANCER
     Dosage: SIX CYCLES
     Route: 065

REACTIONS (3)
  - Myiasis [Recovered/Resolved]
  - Nail toxicity [Recovered/Resolved]
  - Onycholysis [Recovered/Resolved]
